FAERS Safety Report 9493903 (Version 2)
Quarter: 2013Q4

REPORT INFORMATION
  Report Type: Spontaneous
  Country: JP (occurrence: JP)
  Receive Date: 20130903
  Receipt Date: 20131206
  Transmission Date: 20140711
  Serious: No
  Sender: FDA-Public Use
  Company Number: JP-ROCHE-1269379

PATIENT
  Age: 69 Year
  Sex: Female

DRUGS (8)
  1. RITUXIMAB [Suspect]
     Indication: LYMPHOMA
     Route: 042
  2. CYCLOPHOSPHAMIDE [Concomitant]
     Indication: LYMPHOMA
  3. DOXORUBICIN HYDROCHLORIDE [Concomitant]
     Indication: LYMPHOMA
  4. VINCRISTINE SULFATE [Concomitant]
     Indication: LYMPHOMA
  5. PREDNISOLONE [Concomitant]
     Indication: LYMPHOMA
  6. NEXIUM [Concomitant]
  7. LENDORMIN [Concomitant]
  8. OXYCONTIN [Concomitant]

REACTIONS (1)
  - Jaundice [Recovered/Resolved]
